FAERS Safety Report 23073219 (Version 1)
Quarter: 2023Q4

REPORT INFORMATION
  Report Type: Spontaneous
  Country: DE (occurrence: DE)
  Receive Date: 20231017
  Receipt Date: 20231017
  Transmission Date: 20240109
  Serious: Yes (Hospitalization, Other)
  Sender: FDA-Public Use
  Company Number: DE-ELI_LILLY_AND_COMPANY-DE202309016943

PATIENT
  Age: 77 Year
  Sex: Female

DRUGS (5)
  1. LEFLUNOMIDE [Suspect]
     Active Substance: LEFLUNOMIDE
     Indication: Product used for unknown indication
     Dosage: UNK
     Route: 065
  2. CORTISONE [Interacting]
     Active Substance: CORTISONE
     Indication: Giant cell arteritis
     Dosage: UNK
     Route: 065
  3. OLUMIANT [Interacting]
     Active Substance: BARICITINIB
     Indication: Polymyalgia rheumatica
     Dosage: 2 MILLIGRAM (2 MG, UNKNOWN)
     Route: 048
  4. OLUMIANT [Interacting]
     Active Substance: BARICITINIB
     Dosage: 2 MILLIGRAM (2 MG, UNKNOWN)
     Route: 048
     Dates: start: 2021
  5. OLUMIANT [Interacting]
     Active Substance: BARICITINIB
     Indication: Polymyalgia rheumatica
     Dosage: 4 MILLIGRAM (4 MG, UNKNOWN)
     Route: 048
     Dates: start: 2021

REACTIONS (4)
  - Neuropathy peripheral [Unknown]
  - Giant cell arteritis [Unknown]
  - Off label use [Unknown]
  - Drug interaction [Unknown]

NARRATIVE: CASE EVENT DATE: 20210101
